FAERS Safety Report 7103794-X (Version None)
Quarter: 2010Q4

REPORT INFORMATION
  Report Type: 
  Country: None (occurrence: None)
  Receive Date: 20101115
  Receipt Date: 20101110
  Transmission Date: 20110411
  Serious: Yes (Other)
  Sender: FDA-Public Use
  Company Number: US-WATSON-2010-14856

PATIENT
  Age: 65 Year
  Sex: Female

DRUGS (2)
  1. HYDROCORTISONE ACETATE [Suspect]
     Indication: UVEITIS
     Dosage: 30 MG, DAILY
     Route: 065
  2. AZATHIOPRINE [Suspect]
     Indication: UVEITIS
     Dosage: 75 MG, DAILY

REACTIONS (1)
  - CHORIORETINOPATHY [None]
